FAERS Safety Report 14195330 (Version 5)
Quarter: 2018Q1

REPORT INFORMATION
  Report Type: Report from Study
  Country: None (occurrence: US)
  Receive Date: 20171116
  Receipt Date: 20180302
  Transmission Date: 20180508
  Serious: Yes (Death, Hospitalization, Other)
  Sender: FDA-Public Use
  Company Number: US-ABBVIE-17P-163-2152675-00

PATIENT
  Age: 69 Year
  Sex: Male

DRUGS (2)
  1. VENCLEXTA [Suspect]
     Active Substance: VENETOCLAX
     Indication: ACUTE MYELOID LEUKAEMIA
     Route: 048
     Dates: start: 20170918
  2. VENCLEXTA [Suspect]
     Active Substance: VENETOCLAX
     Route: 048
     Dates: start: 20170915

REACTIONS (46)
  - Haemosiderosis [Unknown]
  - Oral candidiasis [Unknown]
  - Blood sodium decreased [Unknown]
  - Ecchymosis [Unknown]
  - Thyroid mass [Unknown]
  - Pulmonary calcification [Unknown]
  - Hypertension [Unknown]
  - Pulmonary mycosis [Unknown]
  - Asthenia [Unknown]
  - Liver disorder [Unknown]
  - Splenomegaly [Unknown]
  - Haemosiderosis [Not Recovered/Not Resolved]
  - Thrombocytosis [Unknown]
  - Liver disorder [Unknown]
  - Upper-airway cough syndrome [Recovered/Resolved with Sequelae]
  - Dysstasia [Unknown]
  - Pleural effusion [Unknown]
  - Hospitalisation [Unknown]
  - Death [Fatal]
  - Pneumonia [Unknown]
  - Spinal osteoarthritis [Unknown]
  - Thyroid calcification [Unknown]
  - Anaemia of malignant disease [Unknown]
  - Lymph node palpable [Unknown]
  - Pneumonia [Unknown]
  - Malnutrition [Unknown]
  - Muscular weakness [Unknown]
  - Constipation [Unknown]
  - Blood testosterone decreased [Unknown]
  - Intraosseous angioma [Unknown]
  - Splenic calcification [Unknown]
  - Thyroid mass [Unknown]
  - Decreased appetite [Unknown]
  - Weight decreased [Not Recovered/Not Resolved]
  - Blood product transfusion dependent [Not Recovered/Not Resolved]
  - Cough [Recovering/Resolving]
  - Pancytopenia [Unknown]
  - Hypogonadism [Unknown]
  - Insomnia [Unknown]
  - Oedema peripheral [Unknown]
  - Splenic lesion [Unknown]
  - Asthenia [Not Recovered/Not Resolved]
  - Asthenia [Unknown]
  - Thrombocytosis [Unknown]
  - Blood product transfusion dependent [Unknown]
  - Alveolitis allergic [Unknown]

NARRATIVE: CASE EVENT DATE: 20171024
